FAERS Safety Report 17083609 (Version 2)
Quarter: 2020Q1

REPORT INFORMATION
  Report Type: Spontaneous
  Country: US (occurrence: US)
  Receive Date: 20191127
  Receipt Date: 20200225
  Transmission Date: 20200409
  Serious: Yes (Other)
  Sender: FDA-Public Use
  Company Number: US-JNJFOC-20191131104

PATIENT
  Age: 51 Year
  Sex: Female
  Weight: 88.08 kg

DRUGS (9)
  1. LEVOTHYROXINE. [Concomitant]
     Active Substance: LEVOTHYROXINE
     Route: 065
     Dates: start: 20190829, end: 20191021
  2. MIRTAZAPINE. [Concomitant]
     Active Substance: MIRTAZAPINE
     Route: 048
     Dates: end: 20191021
  3. CLONAZEPAM. [Concomitant]
     Active Substance: CLONAZEPAM
     Indication: ANXIETY
     Route: 065
     Dates: start: 20190722, end: 20190829
  4. SPRAVATO [Suspect]
     Active Substance: ESKETAMINE
     Indication: DEPRESSION
     Dates: start: 2019, end: 201910
  5. PROPRANOLOL [Concomitant]
     Active Substance: PROPRANOLOL HYDROCHLORIDE
     Route: 048
     Dates: end: 20191107
  6. LITHIUM. [Concomitant]
     Active Substance: LITHIUM
     Route: 048
     Dates: end: 20191107
  7. LATUDA [Concomitant]
     Active Substance: LURASIDONE HYDROCHLORIDE
     Indication: BIPOLAR I DISORDER
     Route: 065
     Dates: start: 201710, end: 20191021
  8. SPRAVATO [Suspect]
     Active Substance: ESKETAMINE
     Indication: BIPOLAR I DISORDER
  9. TRAZODONE [Concomitant]
     Active Substance: TRAZODONE HYDROCHLORIDE
     Indication: SLEEP DISORDER
     Route: 048
     Dates: start: 201509, end: 20191021

REACTIONS (6)
  - Tachycardia [Not Recovered/Not Resolved]
  - Feeling of body temperature change [Recovered/Resolved]
  - Vomiting [Recovered/Resolved]
  - Dysgeusia [Recovering/Resolving]
  - Anxiety [Recovered/Resolved]
  - Feeling abnormal [Not Recovered/Not Resolved]

NARRATIVE: CASE EVENT DATE: 201907
